FAERS Safety Report 7105288-4 (Version None)
Quarter: 2010Q4

REPORT INFORMATION
  Report Type: 
  Country: None (occurrence: None)
  Receive Date: 20101116
  Receipt Date: 20101102
  Transmission Date: 20110411
  Serious: Yes (Hospitalization)
  Sender: FDA-Public Use
  Company Number: BE-CELGENEUS-013-21880-10110278

PATIENT
  Sex: Female
  Weight: 54 kg

DRUGS (2)
  1. REVLIMID [Suspect]
     Route: 048
     Dates: start: 20090107
  2. IMODIUM [Concomitant]
     Indication: DIARRHOEA
     Route: 065

REACTIONS (1)
  - BREAST CANCER [None]
